FAERS Safety Report 6608973-3 (Version None)
Quarter: 2010Q1

REPORT INFORMATION
  Report Type: 
  Country: None (occurrence: None)
  Receive Date: 20100301
  Receipt Date: 20100219
  Transmission Date: 20100710
  Serious: Yes (Other)
  Sender: FDA-Public Use
  Company Number: JP-PFIZER INC-2010015863

PATIENT
  Age: 75 Year
  Sex: Male

DRUGS (5)
  1. NORVASC [Suspect]
     Indication: HYPERTENSION
     Dosage: 2.5 MG, 1X/DAY
     Route: 048
  2. TAURINE [Suspect]
  3. VALSARTAN [Concomitant]
     Dosage: UNK
     Route: 048
  4. ALFAROL [Concomitant]
     Dosage: UNK
     Route: 048
  5. TOCOPHEROL [Concomitant]
     Dosage: UNK
     Route: 048

REACTIONS (1)
  - DEPRESSED LEVEL OF CONSCIOUSNESS [None]
